FAERS Safety Report 4676432-3 (Version None)
Quarter: 2005Q2

REPORT INFORMATION
  Report Type: 
  Country: None (occurrence: None)
  Receive Date: 20050527
  Receipt Date: 20050216
  Transmission Date: 20051028
  Serious: Yes (Hospitalization)
  Sender: FDA-Public Use
  Company Number: DE-MERCK-0502DEU00119

PATIENT
  Age: 55 Year
  Sex: Female
  Weight: 73 kg

DRUGS (9)
  1. VIOXX [Suspect]
     Indication: ARTHRALGIA
     Route: 048
     Dates: start: 20040301, end: 20040301
  2. VIOXX [Suspect]
     Route: 048
     Dates: start: 20040322, end: 20040801
  3. VIOXX [Suspect]
     Indication: CHEST PAIN
     Route: 048
     Dates: start: 20040301, end: 20040301
  4. VIOXX [Suspect]
     Route: 048
     Dates: start: 20040322, end: 20040801
  5. ATORVASTATIN CALCIUM [Concomitant]
     Route: 048
     Dates: start: 20040228, end: 20040322
  6. ASPIRIN [Concomitant]
     Route: 048
     Dates: start: 20040228, end: 20040322
  7. BISOPROLOL FUMARATE [Concomitant]
     Route: 048
     Dates: start: 20040228, end: 20040322
  8. PANTOPRAZOLE SODIUM [Concomitant]
     Route: 048
     Dates: start: 20040228
  9. DIPYRONE [Concomitant]
     Indication: CHEST PAIN
     Route: 048
     Dates: start: 20050322

REACTIONS (5)
  - ANGINA PECTORIS [None]
  - CORONARY ARTERY STENOSIS [None]
  - DRUG EFFECT DECREASED [None]
  - HEADACHE [None]
  - VENOUS STENOSIS [None]
